FAERS Safety Report 26111533 (Version 2)
Quarter: 2025Q4

REPORT INFORMATION
  Report Type: Spontaneous
  Country: EU (occurrence: EU)
  Receive Date: 20251202
  Receipt Date: 20251204
  Transmission Date: 20260118
  Serious: Yes (Hospitalization, Other)
  Sender: BRISTOL-MYERS SQUIBB COMPANY
  Company Number: None

PATIENT
  Age: 79 Year
  Sex: Male

DRUGS (10)
  1. OPDIVO [Suspect]
     Active Substance: NIVOLUMAB
     Indication: Malignant melanoma stage IV
     Dosage: 480 MG FLAT DOSE Q4W
     Route: 042
     Dates: start: 20250512, end: 20250512
  2. OPDIVO [Suspect]
     Active Substance: NIVOLUMAB
     Indication: Metastases to lymph nodes
  3. OPDIVO [Suspect]
     Active Substance: NIVOLUMAB
     Indication: Metastases to lung
  4. SITAGLIPTIN PHOSPHATE [Concomitant]
     Active Substance: SITAGLIPTIN PHOSPHATE
     Indication: Diabetes mellitus
  5. DIAMICRON [Concomitant]
     Indication: Diabetes mellitus
  6. OLMESARTAN MEDOXOMIL [Concomitant]
     Active Substance: OLMESARTAN MEDOXOMIL
     Indication: Hypertension
  7. TAVOR [Concomitant]
     Indication: Product used for unknown indication
     Dosage: IN THE EVENING.
  8. NEBIVOLOL HYDROCHLORIDE [Concomitant]
     Active Substance: NEBIVOLOL HYDROCHLORIDE
     Indication: Hypertension
  9. ASPIRIN [Concomitant]
     Active Substance: ASPIRIN
     Indication: Product used for unknown indication
  10. POLICOL-PLUS [Concomitant]
     Indication: Product used for unknown indication
     Dosage: IN THE EVENING.

REACTIONS (2)
  - Acute kidney injury [Recovered/Resolved]
  - Immune-mediated endocrinopathy [Recovered/Resolved with Sequelae]

NARRATIVE: CASE EVENT DATE: 20250702
